FAERS Safety Report 8648726 (Version 2)
Quarter: 2012Q4

REPORT INFORMATION
  Report Type: 
  Country: ES (occurrence: ES)
  Receive Date: 20120703
  Receipt Date: 20120830
  Transmission Date: 20130627
  Serious: Yes (Hospitalization, Other)
  Sender: FDA-Public Use
  Company Number: ES-ELI_LILLY_AND_COMPANY-ES201206008041

PATIENT
  Age: 51 Year
  Sex: Male

DRUGS (8)
  1. BYETTA [Suspect]
     Indication: TYPE 2 DIABETES MELLITUS
     Dosage: 10 ug, qd
     Route: 058
     Dates: start: 20100401, end: 20120101
  2. VICTOZA [Concomitant]
     Indication: TYPE 2 DIABETES MELLITUS
     Dosage: 1.2 ug, qd
     Route: 058
     Dates: start: 20120102, end: 20120528
  3. METFORMIN [Concomitant]
     Dosage: UNK
     Dates: start: 201104, end: 201110
  4. FENOFIBRATE [Concomitant]
     Dosage: UNK
     Dates: start: 201104, end: 201110
  5. ADIRO [Concomitant]
     Dosage: UNK
     Dates: start: 201104, end: 201110
  6. ENALAPRIL [Concomitant]
  7. OMACOR [Concomitant]
     Dosage: UNK
     Dates: start: 201104, end: 201110
  8. PIOGLITAZONE [Concomitant]
     Dosage: UNK
     Dates: start: 201104, end: 201110

REACTIONS (3)
  - Pancreatic carcinoma [Not Recovered/Not Resolved]
  - Weight decreased [Unknown]
  - Nausea [Unknown]
